FAERS Safety Report 6817931-5 (Version None)
Quarter: 2010Q3

REPORT INFORMATION
  Report Type: 
  Country: None (occurrence: None)
  Receive Date: 20100706
  Receipt Date: 20100625
  Transmission Date: 20110219
  Serious: Yes (Death)
  Sender: FDA-Public Use
  Company Number: TR-BAYER-201030662GPV

PATIENT
  Age: 71 Year
  Sex: Male
  Weight: 74 kg

DRUGS (1)
  1. ULTRAVIST 300 [Suspect]
     Indication: ANGIOGRAM
     Route: 013
     Dates: start: 20100525

REACTIONS (4)
  - ANURIA [None]
  - LUNG INFECTION [None]
  - PULMONARY OEDEMA [None]
  - RENAL FAILURE ACUTE [None]
